FAERS Safety Report 6722835-2 (Version None)
Quarter: 2010Q2

REPORT INFORMATION
  Report Type: 
  Country: None (occurrence: None)
  Receive Date: 20100512
  Receipt Date: 20100512
  Transmission Date: 20101027
  Serious: Yes (Hospitalization)
  Sender: FDA-Public Use
  Company Number: None

PATIENT
  Sex: Male
  Weight: 60.33 kg

DRUGS (3)
  1. LEVAQUIN [Suspect]
     Indication: BRONCHOSCOPY ABNORMAL
     Dosage: PO 6 TABLETS
     Route: 048
     Dates: start: 20100407, end: 20100412
  2. LEVAQUIN [Suspect]
     Indication: PATHOGEN RESISTANCE
     Dosage: PO 6 TABLETS
     Route: 048
     Dates: start: 20100407, end: 20100412
  3. LEVAQUIN [Suspect]
     Indication: STREPTOCOCCUS TEST POSITIVE
     Dosage: PO 6 TABLETS
     Route: 048
     Dates: start: 20100407, end: 20100412

REACTIONS (1)
  - TENDON RUPTURE [None]
